FAERS Safety Report 5216562-0 (Version None)
Quarter: 2007Q1

REPORT INFORMATION
  Report Type: 
  Country: None (occurrence: None)
  Receive Date: 20070118
  Receipt Date: 20070110
  Transmission Date: 20070707
  Serious: Yes (Hospitalization)
  Sender: FDA-Public Use
  Company Number: 6028927

PATIENT
  Age: 85 Year
  Sex: Male

DRUGS (7)
  1. LEVOTHYROXINE SODIUM [Suspect]
     Indication: HYPOTHYROIDISM
     Dosage: 1,5 DOSAGE FORMS (1,5 DOSAGE FORMS,1 D)
     Route: 048
     Dates: start: 20061001
  2. BACTRIM [Suspect]
     Indication: BRONCHITIS
     Route: 048
     Dates: start: 20061028, end: 20061105
  3. INFLUENZA VACCINE INACTIVATED (INFLUENZA VACCINE INACTIVATED) [Suspect]
     Indication: DRUG USE FOR UNKNOWN INDICATION
     Route: 030
     Dates: start: 20061104
  4. GUTRON (2,5 MG) (MIDORINE HYDROCHLORIDE) [Concomitant]
  5. HEPTAMYL (HEPTAMINOL HYDROCHLORIDE) [Concomitant]
  6. METOPROLOL TARTRATE [Concomitant]
  7. PROSCAR [Concomitant]

REACTIONS (13)
  - ASTHENIA [None]
  - BRONCHIAL DISORDER [None]
  - DEHYDRATION [None]
  - DIARRHOEA [None]
  - DYSSTASIA [None]
  - FALL [None]
  - HYPONATRAEMIA [None]
  - INSOMNIA [None]
  - MALAISE [None]
  - PYREXIA [None]
  - RASH MORBILLIFORM [None]
  - RENAL FAILURE [None]
  - SOMNOLENCE [None]
